FAERS Safety Report 6896700-4 (Version None)
Quarter: 2010Q3

REPORT INFORMATION
  Report Type: 
  Country: None (occurrence: None)
  Receive Date: 20100802
  Receipt Date: 20070219
  Transmission Date: 20110219
  Serious: No
  Sender: FDA-Public Use
  Company Number: US-PFIZER INC-2007007346

PATIENT
  Sex: Male
  Weight: 67.59 kg

DRUGS (7)
  1. LYRICA [Suspect]
     Indication: NERVOUSNESS
     Dates: start: 20060101
  2. LYRICA [Suspect]
     Indication: PAIN
  3. CHANTIX [Suspect]
     Indication: SMOKING CESSATION THERAPY
     Dates: start: 20070117
  4. OXYCODONE [Concomitant]
     Indication: NEURALGIA
     Dosage: 40 MILLIGRAM SUSTAIN RELEASE
  5. OXYCODONE [Concomitant]
     Dosage: 30 MILLIGRAM IMMEDIATE RELEASE
  6. XANAX [Concomitant]
     Indication: NEURALGIA
  7. OXYCONTIN [Concomitant]

REACTIONS (7)
  - ABNORMAL DREAMS [None]
  - DIZZINESS [None]
  - DRUG INEFFECTIVE [None]
  - DRUG INTOLERANCE [None]
  - PAIN [None]
  - SOMNOLENCE [None]
  - TOBACCO USER [None]
